FAERS Safety Report 8237149-1 (Version None)
Quarter: 2012Q1

REPORT INFORMATION
  Report Type: 
  Country: None (occurrence: None)
  Receive Date: 20120327
  Receipt Date: 20120323
  Transmission Date: 20120608
  Serious: No
  Sender: FDA-Public Use
  Company Number: US-PFIZER INC-2012025742

PATIENT
  Sex: Male

DRUGS (3)
  1. INSPRA [Suspect]
     Dosage: 25 MG, UNK
     Dates: start: 20120124
  2. LASIX [Suspect]
     Dosage: 30 MG, 1X/DAY
     Dates: start: 20120124
  3. LASIX [Suspect]
     Dosage: 100 MG, 1X/DAY

REACTIONS (3)
  - WEIGHT INCREASED [None]
  - EXPIRED DRUG ADMINISTERED [None]
  - DRUG INEFFECTIVE [None]
